FAERS Safety Report 12621506 (Version 2)
Quarter: 2016Q4

REPORT INFORMATION
  Report Type: Spontaneous
  Country: CA (occurrence: CA)
  Receive Date: 20160804
  Receipt Date: 20161027
  Transmission Date: 20170207
  Serious: Yes (Other)
  Sender: FDA-Public Use
  Company Number: CA-PFIZER INC-2016096960

PATIENT
  Age: 53 Year
  Sex: Female

DRUGS (1)
  1. XELJANZ [Suspect]
     Active Substance: TOFACITINIB CITRATE
     Indication: RHEUMATOID ARTHRITIS
     Dosage: 5 MG, 2X/DAY
     Route: 048
     Dates: start: 20150206

REACTIONS (5)
  - Fatigue [Not Recovered/Not Resolved]
  - Drug effect incomplete [Unknown]
  - Cataract [Unknown]
  - Rheumatoid arthritis [Unknown]
  - Condition aggravated [Unknown]

NARRATIVE: CASE EVENT DATE: 2016
